FAERS Safety Report 18622752 (Version 2)
Quarter: 2021Q1

REPORT INFORMATION
  Report Type: Report from Study
  Country: ES (occurrence: ES)
  Receive Date: 20201216
  Receipt Date: 20210315
  Transmission Date: 20210419
  Serious: Yes (Other)
  Sender: FDA-Public Use
  Company Number: ES-ROCHE-2728319

PATIENT
  Age: 53 Year
  Sex: Male

DRUGS (2)
  1. ATEZOLIZUMAB. [Suspect]
     Active Substance: ATEZOLIZUMAB
     Indication: SMALL CELL LUNG CANCER
     Route: 042
     Dates: start: 20201021
  2. LURBINECTEDIN [Suspect]
     Active Substance: LURBINECTEDIN
     Indication: SMALL CELL LUNG CANCER
     Dosage: STARTING DOSE OF 2.5 MG/M2 I.V. AS A 1?HOUR INFUSION ON DAY 1 EVERY THREE WEEKS (Q3WK). FOLLOWING AN
     Route: 042
     Dates: start: 20201022

REACTIONS (1)
  - Neutrophil count decreased [Unknown]

NARRATIVE: CASE EVENT DATE: 20201103
